FAERS Safety Report 4968542-8 (Version None)
Quarter: 2006Q2

REPORT INFORMATION
  Report Type: 
  Country: None (occurrence: None)
  Receive Date: 20060410
  Receipt Date: 20041004
  Transmission Date: 20061013
  Serious: Yes (Hospitalization)
  Sender: FDA-Public Use
  Company Number: NO-SANOFI-SYNTHELABO-F01200403035

PATIENT
  Sex: Male

DRUGS (4)
  1. OXALIPLATIN [Suspect]
     Indication: COLORECTAL CANCER METASTATIC
     Route: 042
     Dates: start: 20040901, end: 20040901
  2. FLUOROURACIL [Suspect]
     Dosage: 545 MG IV BOLUS THEN 910 MG IV CONTINUOUS INFUSION, Q2W
     Route: 042
     Dates: start: 20040901, end: 20040903
  3. LEUCOVORIN [Suspect]
     Route: 042
     Dates: start: 20040901, end: 20040902
  4. BEVACIZUMAB OR PLACEBO [Suspect]
     Route: 042
     Dates: start: 20040913, end: 20040913

REACTIONS (3)
  - COLITIS [None]
  - DIARRHOEA [None]
  - ENTERITIS [None]
